FAERS Safety Report 7408407-5 (Version None)
Quarter: 2011Q2

REPORT INFORMATION
  Report Type: 
  Country: None (occurrence: None)
  Receive Date: 20110412
  Receipt Date: 20110331
  Transmission Date: 20111010
  Serious: Yes (Hospitalization)
  Sender: FDA-Public Use
  Company Number: US-AMGEN-USASP2011017331

PATIENT
  Age: 48 Year
  Sex: Female

DRUGS (1)
  1. ENBREL [Suspect]
     Indication: RHEUMATOID ARTHRITIS
     Dosage: 50 MG, QWK
     Dates: start: 20010101

REACTIONS (6)
  - INJECTION SITE HAEMORRHAGE [None]
  - OSTEOARTHRITIS [None]
  - FALL [None]
  - HIP FRACTURE [None]
  - RHEUMATOID ARTHRITIS [None]
  - ARTHRITIS INFECTIVE [None]
